FAERS Safety Report 5269957-3 (Version None)
Quarter: 2007Q1

REPORT INFORMATION
  Report Type: 
  Country: None (occurrence: None)
  Receive Date: 20070314
  Receipt Date: 20070205
  Transmission Date: 20070707
  Serious: Yes (Other)
  Sender: FDA-Public Use
  Company Number: 100#03#2007-00428

PATIENT
  Age: 35 Year
  Sex: Female

DRUGS (2)
  1. ONDANSETRON (ONDANSETRON) (ONDANSETRON) [Suspect]
     Indication: DRUG USE FOR UNKNOWN INDICATION
     Dosage: 8 MG TWICE A DAY, INTRAVENOUS (NOT OTHERWISE SPECIFIED)
     Route: 042
     Dates: start: 20070118, end: 20070118
  2. AMITRIPTYLINE (AMITRIPTYLINE) (AMITRIPTYLINE) [Concomitant]

REACTIONS (3)
  - GLASGOW COMA SCALE ABNORMAL [None]
  - RASH [None]
  - TACHYCARDIA [None]
